FAERS Safety Report 8199133-6 (Version None)
Quarter: 2012Q1

REPORT INFORMATION
  Report Type: 
  Country: None (occurrence: None)
  Receive Date: 20120309
  Receipt Date: 20120228
  Transmission Date: 20120608
  Serious: Yes (Other)
  Sender: FDA-Public Use
  Company Number: AU-ROCHE-1040044

PATIENT
  Sex: Female

DRUGS (1)
  1. ACTEMRA [Suspect]
     Indication: RHEUMATOID ARTHRITIS
     Dates: start: 20100922

REACTIONS (8)
  - VIRAL INFECTION [None]
  - HEADACHE [None]
  - PAIN IN EXTREMITY [None]
  - MYALGIA [None]
  - BLISTER [None]
  - ARTHRALGIA [None]
  - PYREXIA [None]
  - DIZZINESS [None]
